FAERS Safety Report 4379187-5 (Version None)
Quarter: 2004Q2

REPORT INFORMATION
  Report Type: 
  Country: None (occurrence: None)
  Receive Date: 20040610
  Receipt Date: 20040527
  Transmission Date: 20050107
  Serious: Yes (Death, Hospitalization)
  Sender: FDA-Public Use
  Company Number: 2004-00034

PATIENT
  Age: 52 Year
  Sex: Male
  Weight: 86.6 kg

DRUGS (1)
  1. VELCADE [Suspect]
     Indication: MULTIPLE MYELOMA

REACTIONS (8)
  - BLOOD BILIRUBIN INCREASED [None]
  - BLOOD CREATININE INCREASED [None]
  - COMA [None]
  - DRUG INTOLERANCE [None]
  - HYPOTENSION [None]
  - PANCYTOPENIA [None]
  - PSEUDOMONAL SEPSIS [None]
  - REFUSAL OF TREATMENT BY RELATIVE [None]
